FAERS Safety Report 4544865-1 (Version None)
Quarter: 2005Q1

REPORT INFORMATION
  Report Type: 
  Country: None (occurrence: None)
  Receive Date: 20050103
  Receipt Date: 20050103
  Transmission Date: 20050727
  Serious: Yes (Life-Threatening, Hospitalization)
  Sender: FDA-Public Use
  Company Number: None

PATIENT
  Sex: Male

DRUGS (1)
  1. WARFARIN SODIUM [Suspect]
     Indication: DEEP VEIN THROMBOSIS
     Dosage: 5 MG   ONCE DAILY  ORAL
     Route: 048
     Dates: start: 20040810, end: 20040824

REACTIONS (2)
  - HAEMORRHAGE [None]
  - NERVOUS SYSTEM DISORDER [None]
